FAERS Safety Report 7952170-6 (Version None)
Quarter: 2011Q4

REPORT INFORMATION
  Report Type: 
  Country: None (occurrence: None)
  Receive Date: 20111201
  Receipt Date: 20111122
  Transmission Date: 20120403
  Serious: Yes (Hospitalization, Other)
  Sender: FDA-Public Use
  Company Number: PHHO2011TW08399

PATIENT
  Sex: Female
  Weight: 55 kg

DRUGS (4)
  1. RAD 666 [Suspect]
     Indication: PANCREATIC NEUROENDOCRINE TUMOUR
     Dosage: 10 MG DAILY
     Route: 048
     Dates: start: 20090610, end: 20110512
  2. NEXIUM [Concomitant]
     Dosage: UNK
     Dates: start: 20110517
  3. PLACEBO [Suspect]
     Indication: PANCREATIC NEUROENDOCRINE TUMOUR
     Dosage: UNK
     Route: 048
     Dates: start: 20090609
  4. BLOOD TRANSFUSION, AUXILIARY PRODUCTS [Suspect]
     Dosage: UNK
     Dates: start: 20110511

REACTIONS (18)
  - TRANSFUSION-RELATED CIRCULATORY OVERLOAD [None]
  - TROPONIN INCREASED [None]
  - TRANSFUSION RELATED COMPLICATION [None]
  - BLOOD CREATINE PHOSPHOKINASE MB INCREASED [None]
  - TRICUSPID VALVE INCOMPETENCE [None]
  - ISCHAEMIA [None]
  - IRON DEFICIENCY ANAEMIA [None]
  - ELECTROCARDIOGRAM ST SEGMENT DEPRESSION [None]
  - MITRAL VALVE INCOMPETENCE [None]
  - AORTIC VALVE SCLEROSIS [None]
  - PULMONARY HYPERTENSION [None]
  - LEFT VENTRICULAR DYSFUNCTION [None]
  - PULMONARY OEDEMA [None]
  - SINUS TACHYCARDIA [None]
  - DILATATION VENTRICULAR [None]
  - ACUTE PULMONARY OEDEMA [None]
  - BLOOD PRESSURE INCREASED [None]
  - AORTIC VALVE INCOMPETENCE [None]
